FAERS Safety Report 4420913-4 (Version None)
Quarter: 2004Q3

REPORT INFORMATION
  Report Type: 
  Country: None (occurrence: None)
  Receive Date: 20040804
  Receipt Date: 20040722
  Transmission Date: 20050211
  Serious: Yes (Hospitalization)
  Sender: FDA-Public Use
  Company Number: 2004225009GB

PATIENT
  Age: 58 Year
  Sex: Female
  Weight: 78.5 kg

DRUGS (1)
  1. FARMORUBICIN(EPIRUBICIN HYDROCHLORIDE) SOLUTION, STERILE [Suspect]
     Indication: BREAST CANCER
     Dosage: 90 MG, CYCLIC, IV
     Route: 042
     Dates: start: 20031021, end: 20031222

REACTIONS (3)
  - DYSGEUSIA [None]
  - FATIGUE [None]
  - VIRAL UPPER RESPIRATORY TRACT INFECTION [None]
